FAERS Safety Report 5453523-0 (Version None)
Quarter: 2007Q3

REPORT INFORMATION
  Report Type: 
  Country: None (occurrence: None)
  Receive Date: 20070913
  Receipt Date: 20070829
  Transmission Date: 20080115
  Serious: Yes (Other)
  Sender: FDA-Public Use
  Company Number: 2007RR-09692

PATIENT
  Age: 43 Year
  Sex: Male

DRUGS (2)
  1. GABAPENTIN [Suspect]
     Dosage: 300 MG, TID, ORAL
     Route: 048
     Dates: start: 20050601, end: 20070810
  2. TRAMADOL HYDROCHLORIDE CAPSULES (TRAMADOL) [Concomitant]

REACTIONS (1)
  - GYNAECOMASTIA [None]
